FAERS Safety Report 7071186-8 (Version None)
Quarter: 2010Q4

REPORT INFORMATION
  Report Type: 
  Country: None (occurrence: None)
  Receive Date: 20101029
  Receipt Date: 20101019
  Transmission Date: 20110411
  Serious: Yes (Other)
  Sender: FDA-Public Use
  Company Number: CH-GENZYME-CLOF-1001233

PATIENT
  Sex: Female
  Weight: 67 kg

DRUGS (7)
  1. CLOLAR [Suspect]
     Indication: ACUTE MYELOID LEUKAEMIA
     Dosage: 27 MG, UNK
     Route: 042
     Dates: start: 20100922, end: 20100924
  2. CYTARABINE [Suspect]
     Indication: ACUTE MYELOID LEUKAEMIA
     Dosage: 360 MG, UNK
     Route: 042
     Dates: start: 20100922, end: 20100924
  3. CYTARABINE [Suspect]
     Dosage: UNK
     Route: 042
     Dates: start: 20100926
  4. IDARUBICIN HCL [Suspect]
     Indication: ACUTE MYELOID LEUKAEMIA
     Dosage: 22 MG, UNK
     Route: 042
     Dates: start: 20100922, end: 20100924
  5. PANTOPRAZOLE SODIUM [Concomitant]
     Indication: PROPHYLAXIS
     Dosage: 40 MG, UNK
     Route: 048
     Dates: start: 20100921, end: 20100925
  6. PIPERACILLIN AND TAZOBACTAM [Concomitant]
     Indication: PNEUMONIA
     Dosage: 13.5 G, UNK
     Route: 042
     Dates: start: 20100924, end: 20100925
  7. DAFALGAN [Concomitant]
     Indication: PYREXIA
     Dosage: 4 G, UNK
     Route: 042
     Dates: start: 20100922, end: 20100925

REACTIONS (4)
  - ALANINE AMINOTRANSFERASE INCREASED [None]
  - ASPARTATE AMINOTRANSFERASE INCREASED [None]
  - ATELECTASIS [None]
  - HYPERBILIRUBINAEMIA [None]
